FAERS Safety Report 24360815 (Version 2)
Quarter: 2024Q4

REPORT INFORMATION
  Report Type: Report from Study
  Country: FR (occurrence: FR)
  Receive Date: 20240925
  Receipt Date: 20241209
  Transmission Date: 20250114
  Serious: Yes (Other)
  Sender: AUROBINDO
  Company Number: FR-AMGEN-FRASP2024113717

PATIENT
  Age: 28 Month
  Weight: 10.3 kg

DRUGS (6)
  1. CINACALCET [Suspect]
     Active Substance: CINACALCET
     Indication: Hyperparathyroidism secondary
     Dosage: 1.3 MILLIGRAM/KILOGRAM, ONCE A DAY
     Route: 065
  2. CINACALCET [Suspect]
     Active Substance: CINACALCET
     Dosage: 1.4 MILLIGRAM/KILOGRAM, ONCE A DAY
     Route: 065
  3. CINACALCET [Suspect]
     Active Substance: CINACALCET
     Dosage: 0.2 MILLIGRAM/KILOGRAM, ONCE A DAY
  4. CALCIUM CARBONATE [Suspect]
     Active Substance: CALCIUM CARBONATE
     Indication: Mineral supplementation
     Dosage: UNK
     Route: 065
  5. SEVELAMER CARBONATE [Suspect]
     Active Substance: SEVELAMER CARBONATE
     Indication: Hyperphosphataemia
     Dosage: UNK
     Route: 065
  6. ALFACALCIDOL [Suspect]
     Active Substance: ALFACALCIDOL
     Indication: Vitamin supplementation
     Dosage: 1.2 MICROGRAM, ONCE A DAY
     Route: 065

REACTIONS (4)
  - Hypocalcaemic seizure [Unknown]
  - Hypocalcaemia [Unknown]
  - Off label use [Unknown]
  - Drug ineffective [Unknown]
